FAERS Safety Report 6603803-8 (Version None)
Quarter: 2010Q1

REPORT INFORMATION
  Report Type: 
  Country: None (occurrence: None)
  Receive Date: 20100226
  Receipt Date: 20090205
  Transmission Date: 20100710
  Serious: No
  Sender: FDA-Public Use
  Company Number: A0767166A

PATIENT
  Age: 20 Year
  Sex: Female

DRUGS (7)
  1. LAMICTAL CD [Suspect]
     Indication: BIPOLAR DISORDER
     Dosage: 300MG PER DAY
     Route: 048
     Dates: start: 20080101
  2. LITHIUM [Concomitant]
  3. ABILIFY [Concomitant]
  4. AMBIEN CR [Concomitant]
  5. ZOLOFT [Concomitant]
  6. LOW-OGESTREL-21 [Concomitant]
  7. RESPERAL [Concomitant]

REACTIONS (4)
  - BURNING SENSATION [None]
  - FEELING HOT [None]
  - HOT FLUSH [None]
  - RASH [None]
